FAERS Safety Report 4407307-2 (Version None)
Quarter: 2004Q3

REPORT INFORMATION
  Report Type: 
  Country: None (occurrence: None)
  Receive Date: 20040723
  Receipt Date: 20040723
  Transmission Date: 20050211
  Serious: Yes (Life-Threatening)
  Sender: FDA-Public Use
  Company Number: None

PATIENT
  Age: 44 Year
  Sex: Female
  Weight: 68 kg

DRUGS (6)
  1. CIPRO [Suspect]
     Indication: KIDNEY INFECTION
     Dosage: 400 MG IV Q 12H
     Route: 042
     Dates: start: 20040531, end: 20040602
  2. CIPRO [Suspect]
     Indication: URINARY TRACT INFECTION
     Dosage: 400 MG IV Q 12H
     Route: 042
     Dates: start: 20040531, end: 20040602
  3. HEPARIN [Concomitant]
  4. LORTAB [Concomitant]
  5. PROTONIX [Concomitant]
  6. UNASYN [Concomitant]

REACTIONS (2)
  - ELECTROCARDIOGRAM QT PROLONGED [None]
  - VENTRICULAR TACHYCARDIA [None]
